FAERS Safety Report 16868313 (Version 1)
Quarter: 2019Q3

REPORT INFORMATION
  Report Type: Spontaneous
  Country: US (occurrence: US)
  Receive Date: 20190930
  Receipt Date: 20190930
  Transmission Date: 20191005
  Serious: Yes (Hospitalization, Other)
  Sender: FDA-Public Use
  Company Number: US-BAYER-2019-172837

PATIENT
  Age: 90 Year
  Sex: Female
  Weight: 42 kg

DRUGS (1)
  1. BAYER LOW DOSE [Suspect]
     Active Substance: ASPIRIN
     Dosage: 1 DF, QD
     Route: 048
     Dates: start: 2017, end: 20190916

REACTIONS (2)
  - Myocardial infarction [Unknown]
  - Therapeutic procedure [None]

NARRATIVE: CASE EVENT DATE: 2019
